FAERS Safety Report 4895111-0 (Version None)
Quarter: 2006Q1

REPORT INFORMATION
  Report Type: 
  Country: None (occurrence: None)
  Receive Date: 20060124
  Receipt Date: 20060112
  Transmission Date: 20060701
  Serious: Yes (Other)
  Sender: FDA-Public Use
  Company Number: 2006S1000015

PATIENT
  Sex: Female

DRUGS (6)
  1. SORIATANE [Suspect]
     Dosage: VAG
     Route: 067
  2. IBUPROFEN [Concomitant]
  3. ASPIRIN [Concomitant]
  4. ELETRIPTAN [Concomitant]
  5. MIGPRIV /01310301/ [Concomitant]
  6. PROPOFAN /00765201/ [Concomitant]

REACTIONS (2)
  - PREGNANCY OF PARTNER [None]
  - TRANSMISSION OF DRUG VIA SEMEN [None]
